FAERS Safety Report 10313945 (Version 2)
Quarter: 2014Q3

REPORT INFORMATION
  Report Type: Spontaneous
  Country: BR (occurrence: BR)
  Receive Date: 20140718
  Receipt Date: 20140718
  Transmission Date: 20150326
  Serious: Yes (Hospitalization)
  Sender: FDA-Public Use
  Company Number: BR-PFIZER INC-2014187009

PATIENT
  Age: 64 Year
  Sex: Female

DRUGS (1)
  1. LONITEN [Suspect]
     Active Substance: MINOXIDIL
     Indication: HYPERTENSION
     Dosage: HALF TABLET (5MG) DAILY
     Dates: start: 201406

REACTIONS (6)
  - Pleural effusion [Unknown]
  - Oliguria [Unknown]
  - Generalised oedema [Unknown]
  - Intentional product misuse [Unknown]
  - Dyspnoea [Unknown]
  - Hair growth abnormal [Unknown]

NARRATIVE: CASE EVENT DATE: 2014
